FAERS Safety Report 13406589 (Version 1)
Quarter: 2017Q2

REPORT INFORMATION
  Report Type: Spontaneous
  Country: US (occurrence: US)
  Receive Date: 20170405
  Receipt Date: 20170405
  Transmission Date: 20170830
  Serious: No
  Sender: FDA-Public Use
  Company Number: US-SA-2016SA087940

PATIENT
  Age: 36 Month
  Sex: Female

DRUGS (1)
  1. ALLEGRA [Suspect]
     Active Substance: FEXOFENADINE HYDROCHLORIDE
     Indication: HYPERSENSITIVITY
     Dosage: STARTED 2 DAYS AGO, ALLEGRA CHILDRENS ORAL SUSPENSION OTC
     Route: 065

REACTIONS (2)
  - Eye swelling [Unknown]
  - Swelling face [Unknown]
